FAERS Safety Report 4638493-7 (Version None)
Quarter: 2005Q2

REPORT INFORMATION
  Report Type: 
  Country: None (occurrence: None)
  Receive Date: 20050418
  Receipt Date: 20050324
  Transmission Date: 20051028
  Serious: Yes (Other)
  Sender: FDA-Public Use
  Company Number: GBS050316782

PATIENT
  Age: 48 Year
  Sex: Male
  Weight: 80 kg

DRUGS (9)
  1. XIGRIS [Suspect]
     Indication: SEPSIS
     Dosage: 24 UG/KG/HR
     Dates: start: 20050228, end: 20050228
  2. ADRENALINE [Concomitant]
  3. NORADRENALINE [Concomitant]
  4. PROPOFOL [Concomitant]
  5. ALFENTANIL [Concomitant]
  6. TERLIPRESSIN [Concomitant]
  7. HYDROCORTISONE [Concomitant]
  8. MEROPENEM [Concomitant]
  9. TEICOPLANIN [Concomitant]

REACTIONS (2)
  - CARDIAC ARREST [None]
  - DISSEMINATED INTRAVASCULAR COAGULATION [None]
